FAERS Safety Report 4716463-8 (Version None)
Quarter: 2005Q3

REPORT INFORMATION
  Report Type: 
  Country: None (occurrence: None)
  Receive Date: 20050714
  Receipt Date: 20050705
  Transmission Date: 20060218
  Serious: Yes (Hospitalization, Other)
  Sender: FDA-Public Use
  Company Number: 2005097170

PATIENT
  Age: 51 Year
  Sex: Female

DRUGS (5)
  1. ATARAX [Suspect]
     Indication: ILL-DEFINED DISORDER
     Dosage: 500 MG (1 D), ORAL
     Route: 048
     Dates: start: 20050626, end: 20050626
  2. FUROSEMIDE (FUROSEMIDE) [Suspect]
     Indication: ILL-DEFINED DISORDER
     Dosage: 2000 MG (1 D), ORAL
     Route: 048
     Dates: start: 20050626, end: 20050626
  3. ACETAMINOPHEN [Suspect]
     Indication: ILL-DEFINED DISORDER
     Dosage: 10000 MG (1 D), ORAL
     Route: 048
     Dates: start: 20050626, end: 20050626
  4. ALL OTHER THERAPEUTIC PRODUCTS (ALL OTHER THERAPEUTIC PRODUCTS) [Suspect]
     Indication: ILL-DEFINED DISORDER
     Dosage: 3000 MG (60 MG, 1 D), ORAL
     Route: 048
     Dates: start: 20050626, end: 20050626
  5. RANITIDINE HYDROCHLORIDE [Suspect]
     Indication: ILL-DEFINED DISORDER
     Dosage: 3000 MG (1 D), ORAL
     Route: 048
     Dates: start: 20050626, end: 20050626

REACTIONS (4)
  - GASTROINTESTINAL DISORDER [None]
  - INTENTIONAL MISUSE [None]
  - MULTIPLE DRUG OVERDOSE [None]
  - SUICIDE ATTEMPT [None]
